FAERS Safety Report 8103261-0 (Version None)
Quarter: 2012Q1

REPORT INFORMATION
  Report Type: 
  Country: None (occurrence: None)
  Receive Date: 20120127
  Receipt Date: 20120124
  Transmission Date: 20120608
  Serious: Yes (Hospitalization, Disabling, Other)
  Sender: FDA-Public Use
  Company Number: 2010SP058866

PATIENT
  Age: 34 Year
  Sex: Female
  Weight: 95.2554 kg

DRUGS (2)
  1. HYDROMORPHONE HCL [Suspect]
     Indication: PAIN
  2. NUVARING [Suspect]
     Indication: CONTRACEPTION
     Dates: start: 20070201, end: 20090301

REACTIONS (25)
  - SUPERIOR SAGITTAL SINUS THROMBOSIS [None]
  - OVARIAN CYST [None]
  - THROMBOSIS [None]
  - OEDEMA [None]
  - BLOOD DISORDER [None]
  - VARICOSE VEIN [None]
  - IMPAIRED WORK ABILITY [None]
  - TREMOR [None]
  - DEHYDRATION [None]
  - DECREASED APPETITE [None]
  - DEEP VEIN THROMBOSIS [None]
  - MATERNAL EXPOSURE DURING PREGNANCY [None]
  - ABORTION SPONTANEOUS [None]
  - FIBROMYALGIA [None]
  - MIGRAINE [None]
  - TRANSVERSE SINUS THROMBOSIS [None]
  - CONVULSION [None]
  - DEPRESSION [None]
  - ANXIETY [None]
  - BACK PAIN [None]
  - ANTIPHOSPHOLIPID ANTIBODIES [None]
  - ANTIPHOSPHOLIPID SYNDROME [None]
  - WEIGHT INCREASED [None]
  - HYPERCOAGULATION [None]
  - ANAEMIA VITAMIN B12 DEFICIENCY [None]
